FAERS Safety Report 22520400 (Version 1)
Quarter: 2023Q2

REPORT INFORMATION
  Report Type: Spontaneous
  Country: US (occurrence: None)
  Receive Date: 20230602
  Receipt Date: 20230602
  Transmission Date: 20230721
  Serious: No
  Sender: FDA-Public Use
  Company Number: None

PATIENT
  Sex: Male

DRUGS (21)
  1. ERLEADA [Suspect]
     Active Substance: APALUTAMIDE
     Indication: Prostate cancer
     Dosage: FREQUENCY : DAILY;?
     Route: 048
     Dates: start: 202210
  2. AMLODIPINE [Concomitant]
     Active Substance: AMLODIPINE BESYLATE
  3. ASPIRIN [Concomitant]
     Active Substance: ASPIRIN
  4. NITROSTAT [Concomitant]
     Active Substance: NITROGLYCERIN
  5. BACTRIM [Concomitant]
     Active Substance: SULFAMETHOXAZOLE\TRIMETHOPRIM
  6. INSULIN NOS [Concomitant]
     Active Substance: INSULIN NOS
  7. FARXIGA [Concomitant]
     Active Substance: DAPAGLIFLOZIN PROPANEDIOL
  8. LEXAPRO [Concomitant]
     Active Substance: ESCITALOPRAM OXALATE
  9. LEVOCETIRIZINE [Concomitant]
     Active Substance: LEVOCETIRIZINE
  10. CEFDINIR [Concomitant]
     Active Substance: CEFDINIR
  11. XYZAL [Concomitant]
     Active Substance: LEVOCETIRIZINE DIHYDROCHLORIDE
  12. NAPROXEN [Concomitant]
     Active Substance: NAPROXEN
  13. PREGABALIN [Concomitant]
     Active Substance: PREGABALIN
  14. CLOPIDOGREL [Concomitant]
     Active Substance: CLOPIDOGREL BISULFATE
  15. MEMANTINE [Concomitant]
     Active Substance: MEMANTINE
  16. LUPITOR [Concomitant]
  17. BYDUREON [Concomitant]
     Active Substance: EXENATIDE
  18. PLAVIX [Concomitant]
     Active Substance: CLOPIDOGREL BISULFATE
  19. JARDIANCE [Concomitant]
     Active Substance: EMPAGLIFLOZIN
  20. ISOSORBIDE [Concomitant]
     Active Substance: ISOSORBIDE
  21. RANEXA [Concomitant]
     Active Substance: RANOLAZINE

REACTIONS (1)
  - Disease progression [None]
